FAERS Safety Report 8275805-X (Version None)
Quarter: 2012Q2

REPORT INFORMATION
  Report Type: 
  Country: None (occurrence: None)
  Receive Date: 20120410
  Receipt Date: 20120410
  Transmission Date: 20120825
  Serious: Yes (Hospitalization, Other)
  Sender: FDA-Public Use
  Company Number: None

PATIENT
  Age: 70 Year
  Sex: Male
  Weight: 67.3 kg

DRUGS (2)
  1. ALBUTEROL SULFATE AND IPRATROPIUM BROMIDE [Suspect]
     Indication: CHRONIC OBSTRUCTIVE PULMONARY DISEASE
     Dates: start: 20120129, end: 20120201
  2. ALBUTEROL SULFATE AND IPRATROPIUM BROMIDE [Suspect]
     Indication: LUNG ADENOCARCINOMA STAGE IV
     Dates: start: 20120129, end: 20120201

REACTIONS (4)
  - TACHYCARDIA [None]
  - BLOOD PRESSURE INCREASED [None]
  - ACUTE PULMONARY OEDEMA [None]
  - DYSPNOEA [None]
